FAERS Safety Report 26063217 (Version 1)
Quarter: 2025Q4

REPORT INFORMATION
  Report Type: Report from Study
  Country: CO (occurrence: CO)
  Receive Date: 20251119
  Receipt Date: 20251119
  Transmission Date: 20260117
  Serious: Yes (Other)
  Sender: BIOVITRUM
  Company Number: CO-AstraZeneca-CH-00992308A

PATIENT
  Age: 6 Month
  Sex: Female
  Weight: 5.52 kg

DRUGS (1)
  1. PALIVIZUMAB [Suspect]
     Active Substance: PALIVIZUMAB
     Indication: Antiviral prophylaxis
     Dosage: 15 MILLIGRAM/KILOGRAM, QMONTH
     Route: 030
     Dates: start: 20250604

REACTIONS (3)
  - Crying [Recovered/Resolved]
  - Cyanosis [Recovered/Resolved]
  - Breath holding [Recovered/Resolved]

NARRATIVE: CASE EVENT DATE: 20251111
